FAERS Safety Report 25549395 (Version 2)
Quarter: 2025Q3

REPORT INFORMATION
  Report Type: Spontaneous
  Country: EU (occurrence: EU)
  Receive Date: 20250714
  Receipt Date: 20250723
  Transmission Date: 20251021
  Serious: Yes (Death, Other)
  Sender: HIKMA
  Company Number: EU-HIKMA PHARMACEUTICALS USA INC.-PT-H14001-25-08383

PATIENT
  Sex: Female

DRUGS (1)
  1. CEFUROXIME [Suspect]
     Active Substance: CEFUROXIME
     Indication: Cystitis
     Route: 065

REACTIONS (1)
  - Pathogen resistance [Fatal]
